FAERS Safety Report 18757935 (Version 2)
Quarter: 2021Q1

REPORT INFORMATION
  Report Type: Spontaneous
  Country: JP (occurrence: JP)
  Receive Date: 20210119
  Receipt Date: 20210316
  Transmission Date: 20210419
  Serious: Yes (Hospitalization)
  Sender: FDA-Public Use
  Company Number: NVSC2021JP010293

PATIENT
  Age: 48 Year
  Sex: Male
  Weight: 62 kg

DRUGS (4)
  1. PREGABALIN. [Concomitant]
     Active Substance: PREGABALIN
     Indication: PRODUCT USED FOR UNKNOWN INDICATION
     Dosage: 150 MG
     Route: 048
  2. FAMVIR [Suspect]
     Active Substance: FAMCICLOVIR
     Indication: HERPES ZOSTER
     Dosage: UNK
     Route: 048
  3. ACICLOVIR [Suspect]
     Active Substance: ACYCLOVIR
     Indication: HERPES ZOSTER
     Dosage: 200 MG (PROPHYLACTIC DOSE)
     Route: 041
  4. TRAMADOL/ACETAMINOPHEN [Concomitant]
     Active Substance: ACETAMINOPHEN\TRAMADOL
     Indication: PRODUCT USED FOR UNKNOWN INDICATION
     Dosage: UNK
     Route: 048

REACTIONS (1)
  - Thrombotic microangiopathy [Recovering/Resolving]
